FAERS Safety Report 5348333-9 (Version None)
Quarter: 2007Q2

REPORT INFORMATION
  Report Type: 
  Country: None (occurrence: None)
  Receive Date: 20070606
  Receipt Date: 20070530
  Transmission Date: 20071010
  Serious: Yes (Disabling)
  Sender: FDA-Public Use
  Company Number: US-MERCK-0705USA00587

PATIENT
  Age: 70 Year
  Sex: Male

DRUGS (2)
  1. SINGULAIR [Suspect]
     Indication: ASTHMA
     Route: 048
  2. CARDURA [Concomitant]
     Route: 065

REACTIONS (2)
  - HYPOAESTHESIA [None]
  - NECK PAIN [None]
